FAERS Safety Report 8924397 (Version 1)
Quarter: 2012Q4

REPORT INFORMATION
  Report Type: Spontaneous
  Country: US (occurrence: None)
  Receive Date: 20121116
  Receipt Date: 20121116
  Transmission Date: 20130627
  Serious: Yes (Hospitalization)
  Sender: FDA-Public Use
  Company Number: 2012-1254

PATIENT
  Age: 42 Year
  Sex: Male
  Weight: 87.5 kg

DRUGS (3)
  1. CARFILZOMIB [Suspect]
     Indication: MULTIPLE MYELOMA
     Dosage: (days 1, 2, 8, 9, 15)
     Route: 042
     Dates: start: 20121023
  2. LENALIDOMIDE [Suspect]
     Indication: MULTIPLE MYELOMA
     Dosage: (days 1-21)
     Route: 048
     Dates: start: 20121024
  3. DEXAMETHASONE [Suspect]
     Indication: MULTIPLE MYELOMA

REACTIONS (6)
  - Hiccups [None]
  - Vomiting [None]
  - Dehydration [None]
  - Hypophagia [None]
  - Insomnia [None]
  - Enlarged uvula [None]
